FAERS Safety Report 24339115 (Version 1)
Quarter: 2024Q3

REPORT INFORMATION
  Report Type: Spontaneous
  Country: DK (occurrence: DK)
  Receive Date: 20240919
  Receipt Date: 20240919
  Transmission Date: 20241016
  Serious: Yes (Hospitalization)
  Sender: SANDOZ
  Company Number: DK-MLMSERVICE-20240903-PI182349-00218-2

PATIENT
  Sex: Male

DRUGS (1)
  1. METHOTREXATE [Suspect]
     Active Substance: METHOTREXATE
     Indication: Rheumatoid arthritis
     Dosage: UNK
     Route: 065

REACTIONS (7)
  - Tibia fracture [Recovered/Resolved]
  - Femur fracture [Recovered/Resolved]
  - Patella fracture [Recovered/Resolved]
  - Foot fracture [Recovered/Resolved]
  - Fall [Unknown]
  - Stress fracture [Recovered/Resolved]
  - Osteoporosis [Recovered/Resolved]

NARRATIVE: CASE EVENT DATE: 20220101
